FAERS Safety Report 17856558 (Version 1)
Quarter: 2020Q2

REPORT INFORMATION
  Report Type: Spontaneous
  Country: TW (occurrence: TW)
  Receive Date: 20200603
  Receipt Date: 20200603
  Transmission Date: 20200714
  Serious: Yes (Death, Other)
  Sender: FDA-Public Use
  Company Number: TW-FRESENIUS KABI-FK202005495

PATIENT
  Age: 70 Year
  Sex: Male

DRUGS (3)
  1. URACIL/TEGAFUR [Suspect]
     Active Substance: TEGAFUR\URACIL
     Indication: SPINDLE CELL SARCOMA
     Route: 065
  2. CISPLATIN (MANUFACTURER UNKNOWN) [Suspect]
     Active Substance: CISPLATIN
     Indication: SPINDLE CELL SARCOMA
     Dosage: DAY 1
     Route: 065
  3. FOLINIC ACID [Suspect]
     Active Substance: LEUCOVORIN
     Indication: SPINDLE CELL SARCOMA
     Route: 065

REACTIONS (2)
  - Septic shock [Fatal]
  - Febrile neutropenia [Unknown]
